FAERS Safety Report 7153685-3 (Version None)
Quarter: 2010Q4

REPORT INFORMATION
  Report Type: 
  Country: None (occurrence: None)
  Receive Date: 20101213
  Receipt Date: 20101209
  Transmission Date: 20110411
  Serious: Yes (Hospitalization)
  Sender: FDA-Public Use
  Company Number: ES-PFIZER INC-2010167737

PATIENT
  Age: 84 Year
  Sex: Male

DRUGS (9)
  1. ALDACTONE [Suspect]
     Indication: HYPERTENSION
     Dosage: 100 MG, 1X/DAY
     Route: 048
     Dates: start: 20081201, end: 20100526
  2. FUROSEMIDE [Interacting]
     Indication: HYPERTENSION
     Dosage: UNK
     Route: 048
     Dates: start: 20100513, end: 20100524
  3. ENALAPRIL [Interacting]
     Indication: HYPERTENSION
     Dosage: 5 MG, 2X/DAY
     Route: 048
     Dates: start: 20070626
  4. SALBUTAMOL [Concomitant]
  5. ATROVENT [Concomitant]
     Dosage: 250 UG, UNK
     Route: 055
  6. COROPRES [Concomitant]
     Indication: ARRHYTHMIA
     Dosage: 6.25 MG, 1X/DAY
     Route: 048
     Dates: start: 20050214
  7. LESCOL [Concomitant]
     Indication: HYPERCHOLESTEROLAEMIA
     Dosage: 80 MG, 1X/DAY
     Route: 048
     Dates: start: 20050214
  8. PLAVIX [Concomitant]
     Indication: CARDIOVASCULAR EVENT PROPHYLAXIS
     Dosage: 75 MG, 1X/DAY
     Route: 048
     Dates: start: 20051103
  9. SINTROM [Concomitant]

REACTIONS (4)
  - DIZZINESS [None]
  - DRUG INTERACTION [None]
  - FALL [None]
  - HYPERKALAEMIA [None]
